APPROVED DRUG PRODUCT: HYDROCORTISONE
Active Ingredient: HYDROCORTISONE
Strength: 1%
Dosage Form/Route: LOTION;TOPICAL
Application: A089024 | Product #001
Applicant: TARO PHARMACEUTICALS USA INC
Approved: Feb 12, 1986 | RLD: No | RS: No | Type: DISCN